FAERS Safety Report 18065949 (Version 3)
Quarter: 2020Q3

REPORT INFORMATION
  Report Type: Report from Study
  Country: GB (occurrence: GB)
  Receive Date: 20200724
  Receipt Date: 20200812
  Transmission Date: 20201103
  Serious: Yes (Other)
  Sender: FDA-Public Use
  Company Number: NVSC2020GB193181

PATIENT
  Sex: Female

DRUGS (1)
  1. COSENTYX [Suspect]
     Active Substance: SECUKINUMAB
     Indication: PSORIATIC ARTHROPATHY
     Dosage: 300 MG, QW (WEEKS (0, 1,2, 3, 4), AFTER 300MG, MONTHLY
     Route: 058
     Dates: start: 20200626

REACTIONS (5)
  - Rhinorrhoea [Unknown]
  - Productive cough [Unknown]
  - Fatigue [Unknown]
  - Headache [Unknown]
  - Lower respiratory tract infection [Unknown]
